FAERS Safety Report 23916786 (Version 1)
Quarter: 2024Q2

REPORT INFORMATION
  Report Type: Spontaneous
  Country: NZ (occurrence: NZ)
  Receive Date: 20240529
  Receipt Date: 20240529
  Transmission Date: 20240716
  Serious: Yes (Hospitalization, Other)
  Sender: FDA-Public Use
  Company Number: NZ-MYLANLABS-2024M1045025

PATIENT
  Age: 56 Year
  Sex: Male

DRUGS (9)
  1. CLOZARIL [Suspect]
     Active Substance: CLOZAPINE
     Indication: Schizophrenia
     Dosage: UNK
     Route: 048
     Dates: start: 20010809, end: 20230804
  2. CLOZARIL [Suspect]
     Active Substance: CLOZAPINE
     Dosage: 300 MILLIGRAM, ON, (EVERY NIGHT)
     Route: 065
     Dates: end: 20230807
  3. RISPERIDONE [Concomitant]
     Active Substance: RISPERIDONE
     Dosage: 2 MILLIGRAM, PM, AT NIGHT
     Route: 065
  4. RISPERIDONE [Concomitant]
     Active Substance: RISPERIDONE
     Dosage: 3 MILLIGRAM, PM,(ON (EVERY NIGHT))
     Route: 065
  5. OLANZAPINE [Concomitant]
     Active Substance: OLANZAPINE
     Dosage: 5 MILLIGRAM, PRN, (AS NEEDED)
     Route: 065
  6. DOXAZOSIN [Concomitant]
     Active Substance: DOXAZOSIN MESYLATE
     Dosage: 2 MILLIGRAM, PM, ON (EVERY NIGHT)
     Route: 065
  7. METOPROLOL [Concomitant]
     Active Substance: METOPROLOL
     Dosage: 47.5 MILLIGRAM, QD
     Route: 065
  8. TETRABENAZINE [Concomitant]
     Active Substance: TETRABENAZINE
     Dosage: 0.5 DOSAGE FORM, AM, (MORNING)
     Route: 065
  9. ASPIRIN [Concomitant]
     Active Substance: ASPIRIN
     Dosage: UNK
     Route: 065

REACTIONS (9)
  - Intestinal obstruction [Recovering/Resolving]
  - Pneumonia [Unknown]
  - Sepsis [Unknown]
  - Vomiting [Unknown]
  - Hallucination, auditory [Recovered/Resolved]
  - Atrial fibrillation [Unknown]
  - Dyskinesia [Recovering/Resolving]
  - Hypotension [Unknown]
  - Tachycardia [Unknown]

NARRATIVE: CASE EVENT DATE: 20230730
